FAERS Safety Report 9948335 (Version 1)
Quarter: 2014Q1

REPORT INFORMATION
  Report Type: Spontaneous
  Country: US (occurrence: None)
  Receive Date: 20140122
  Receipt Date: 20140122
  Transmission Date: 20141002
  Serious: Yes (Other)
  Sender: FDA-Public Use
  Company Number: AP356-00172-SPO-US

PATIENT
  Age: 30 Year
  Sex: Male

DRUGS (2)
  1. BELVIQ [Suspect]
     Route: 048
     Dates: start: 2013
  2. PHENTERMINE [Suspect]

REACTIONS (2)
  - Anger [None]
  - Agitation [None]
